FAERS Safety Report 19473379 (Version 2)
Quarter: 2022Q1

REPORT INFORMATION
  Report Type: Spontaneous
  Country: US (occurrence: US)
  Receive Date: 20210629
  Receipt Date: 20220314
  Transmission Date: 20220424
  Serious: Yes (Other)
  Sender: FDA-Public Use
  Company Number: US-GILEAD-2021-0537603

PATIENT
  Sex: Female
  Weight: 63.492 kg

DRUGS (26)
  1. VIREAD [Suspect]
     Active Substance: TENOFOVIR DISOPROXIL FUMARATE
     Indication: HIV infection
     Dosage: UNK
     Route: 048
     Dates: start: 2009
  2. VIREAD [Suspect]
     Active Substance: TENOFOVIR DISOPROXIL FUMARATE
     Dosage: UNK
     Route: 065
     Dates: start: 2002, end: 2017
  3. ISENTRESS [Concomitant]
     Active Substance: RALTEGRAVIR POTASSIUM
  4. CALCITRIOL [Concomitant]
     Active Substance: CALCITRIOL
  5. CALCIUM CARBONATE [Concomitant]
     Active Substance: CALCIUM CARBONATE
  6. ENVARSUS XR [Concomitant]
     Active Substance: TACROLIMUS
  7. MYFORTIC [Concomitant]
     Active Substance: MYCOPHENOLATE SODIUM
  8. PREDNISONE [Concomitant]
     Active Substance: PREDNISONE
  9. VALCYTE [Concomitant]
     Active Substance: VALGANCICLOVIR HYDROCHLORIDE
  10. BACTRIM [Concomitant]
     Active Substance: SULFAMETHOXAZOLE\TRIMETHOPRIM
  11. NYSTATIN [Concomitant]
     Active Substance: NYSTATIN
  12. LASIX [Concomitant]
     Active Substance: FUROSEMIDE
  13. HYDROCHLOROTHIAZIDE [Concomitant]
     Active Substance: HYDROCHLOROTHIAZIDE
  14. EPIVIR [Concomitant]
     Active Substance: LAMIVUDINE
  15. NORVIR [Concomitant]
     Active Substance: RITONAVIR
  16. REYATAZ [Concomitant]
     Active Substance: ATAZANAVIR SULFATE
  17. TIVICAY [Concomitant]
     Active Substance: DOLUTEGRAVIR SODIUM
  18. TRIUMEQ [Concomitant]
     Active Substance: ABACAVIR SULFATE\DOLUTEGRAVIR SODIUM\LAMIVUDINE
  19. AMLODIPINE [Concomitant]
     Active Substance: AMLODIPINE BESYLATE
  20. ASPIRIN [Concomitant]
     Active Substance: ASPIRIN
  21. COREG [Concomitant]
     Active Substance: CARVEDILOL
  22. HUMALOG [Concomitant]
     Active Substance: INSULIN LISPRO
  23. LANTUS [Concomitant]
     Active Substance: INSULIN GLARGINE
  24. OXYCODONE [Concomitant]
     Active Substance: OXYCODONE
  25. OMEPRAZOLE [Concomitant]
     Active Substance: OMEPRAZOLE
  26. TYLENOL [Concomitant]
     Active Substance: ACETAMINOPHEN

REACTIONS (8)
  - End stage renal disease [Not Recovered/Not Resolved]
  - Chronic kidney disease [Recovered/Resolved]
  - Pain [Not Recovered/Not Resolved]
  - Emotional distress [Not Recovered/Not Resolved]
  - Anxiety [Not Recovered/Not Resolved]
  - Anhedonia [Not Recovered/Not Resolved]
  - Nephropathy [Unknown]
  - Depression [Unknown]

NARRATIVE: CASE EVENT DATE: 20070101
